FAERS Safety Report 15235475 (Version 3)
Quarter: 2019Q1

REPORT INFORMATION
  Report Type: Report from Study
  Country: US (occurrence: US)
  Receive Date: 20180803
  Receipt Date: 20190321
  Transmission Date: 20190417
  Serious: Yes (Hospitalization, Other)
  Sender: FDA-Public Use
  Company Number: US-GILEAD-2018-0352871

PATIENT
  Age: 56 Year
  Sex: Male

DRUGS (2)
  1. RANOLAZINE. [Suspect]
     Active Substance: RANOLAZINE
     Indication: VENTRICULAR EXTRASYSTOLES
     Dosage: 500 MG, BID
     Route: 048
     Dates: start: 201712
  2. RANOLAZINE. [Suspect]
     Active Substance: RANOLAZINE
     Indication: VENTRICULAR TACHYCARDIA
     Dosage: 500 MG, BID
     Route: 048

REACTIONS (8)
  - Dyspnoea exertional [Unknown]
  - Product use issue [Not Recovered/Not Resolved]
  - Ventricular extrasystoles [Unknown]
  - Cardiac fibrillation [Unknown]
  - Off label use [Not Recovered/Not Resolved]
  - Heart rate abnormal [Recovering/Resolving]
  - Intentional product use issue [Recovered/Resolved]
  - Dyspnoea [Unknown]

NARRATIVE: CASE EVENT DATE: 201712
